FAERS Safety Report 14324417 (Version 2)
Quarter: 2017Q4

REPORT INFORMATION
  Report Type: Report from Study
  Country: BR (occurrence: BR)
  Receive Date: 20171226
  Receipt Date: 20171227
  Transmission Date: 20180321
  Serious: Yes (Hospitalization, Other)
  Sender: FDA-Public Use
  Company Number: BR-JNJFOC-20171228876

PATIENT
  Sex: Female
  Weight: 84 kg

DRUGS (8)
  1. DIOVAN [Concomitant]
     Active Substance: VALSARTAN
     Route: 065
  2. STELARA [Suspect]
     Active Substance: USTEKINUMAB
     Indication: PSORIASIS
     Route: 058
     Dates: start: 20170807
  3. LASIX [Concomitant]
     Active Substance: FUROSEMIDE
     Route: 065
  4. ETHINYLESTRADIOL [Concomitant]
     Active Substance: ETHINYL ESTRADIOL
     Route: 065
  5. ROSUCOR [Concomitant]
     Active Substance: ROSUVASTATIN CALCIUM
     Route: 065
  6. CONCARDIO [Concomitant]
     Active Substance: BISOPROLOL FUMARATE
     Route: 065
  7. LEVOID [Concomitant]
     Active Substance: LEVOTHYROXINE
     Route: 065
  8. ACITRETIN. [Concomitant]
     Active Substance: ACITRETIN
     Route: 065

REACTIONS (7)
  - Cellulitis [Recovering/Resolving]
  - Gastric disorder [Unknown]
  - Pharyngitis [Recovering/Resolving]
  - Anaemia [Recovering/Resolving]
  - Weight decreased [Recovered/Resolved]
  - Infection [Recovering/Resolving]
  - Psoriasis [Unknown]
